FAERS Safety Report 7278025-0 (Version None)
Quarter: 2011Q1

REPORT INFORMATION
  Report Type: 
  Country: None (occurrence: None)
  Receive Date: 20110207
  Receipt Date: 20110202
  Transmission Date: 20110831
  Serious: Yes (Hospitalization)
  Sender: FDA-Public Use
  Company Number: IE-MEDIMMUNE-MEDI-0012398

PATIENT
  Sex: Male

DRUGS (5)
  1. PYRIDOSTIGMINE BROMIDE [Concomitant]
  2. OMEPRAZOLE [Concomitant]
  3. CAFFEINE [Concomitant]
  4. SYNAGIS [Suspect]
     Route: 030
     Dates: start: 20101210, end: 20101210
  5. DOMPERIDONE [Concomitant]

REACTIONS (1)
  - H1N1 INFLUENZA [None]
